FAERS Safety Report 22389291 (Version 1)
Quarter: 2023Q2

REPORT INFORMATION
  Report Type: Spontaneous
  Country: US (occurrence: US)
  Receive Date: 20230531
  Receipt Date: 20230531
  Transmission Date: 20230722
  Serious: No
  Sender: FDA-Public Use
  Company Number: US-BIOGEN-2022BI01125693

PATIENT
  Age: 37 Year
  Sex: Female

DRUGS (2)
  1. TYSABRI [Suspect]
     Active Substance: NATALIZUMAB
     Indication: Multiple sclerosis
     Route: 050
     Dates: start: 20130930
  2. BOTOX [Suspect]
     Active Substance: ONABOTULINUMTOXINA
     Indication: Migraine
     Route: 050

REACTIONS (5)
  - COVID-19 [Unknown]
  - Migraine [Unknown]
  - Photosensitivity reaction [Recovered/Resolved]
  - Fatigue [Unknown]
  - Influenza [Unknown]

NARRATIVE: CASE EVENT DATE: 20220513
